FAERS Safety Report 4934863-8 (Version None)
Quarter: 2006Q1

REPORT INFORMATION
  Report Type: 
  Country: None (occurrence: None)
  Receive Date: 20060302
  Receipt Date: 20060217
  Transmission Date: 20060701
  Serious: Yes (Hospitalization, Disabling)
  Sender: FDA-Public Use
  Company Number: 2006018177

PATIENT
  Age: 16 Year
  Sex: Male

DRUGS (8)
  1. HYDROCORTISONE ACETATE [Suspect]
     Indication: ACUTE LYMPHOCYTIC LEUKAEMIA
     Dosage: 20 MG
     Dates: start: 19980101
  2. METHOTREXATE [Suspect]
     Indication: ACUTE LYMPHOCYTIC LEUKAEMIA
     Dosage: 12 MG
     Dates: start: 19980101
  3. CYTARABINE [Suspect]
     Indication: ACUTE LYMPHOCYTIC LEUKAEMIA
     Dosage: 30 MG
     Dates: start: 19980101
  4. DAUNORUBICIN HCL [Concomitant]
  5. VINCRISTINE [Concomitant]
  6. PREDNISONE [Concomitant]
  7. CYCLOPHOSPHAMIDE [Concomitant]
  8. ASPARGIN (ASPARTIC ACID) [Concomitant]

REACTIONS (11)
  - ACUTE LYMPHOCYTIC LEUKAEMIA RECURRENT [None]
  - CEREBRAL HAEMATOMA [None]
  - CEREBRAL HAEMORRHAGE [None]
  - COAGULOPATHY [None]
  - CONSTIPATION [None]
  - HEMIPARESIS [None]
  - HEMIPLEGIA [None]
  - MYELOPATHY [None]
  - PARAPLEGIA [None]
  - SEPTIC SHOCK [None]
  - URINARY INCONTINENCE [None]
